FAERS Safety Report 8747651 (Version 2)
Quarter: 2012Q4

REPORT INFORMATION
  Report Type: 
  Country: US (occurrence: US)
  Receive Date: 20120827
  Receipt Date: 20121119
  Transmission Date: 20130627
  Serious: No
  Sender: FDA-Public Use
  Company Number: US-009507513-1208USA002990

PATIENT
  Age: 30 Year
  Sex: Female
  Weight: 77.98 kg

DRUGS (2)
  1. IMPLANON [Suspect]
     Indication: CONTRACEPTION
     Dosage: 3 years
     Route: 059
     Dates: start: 20090720
  2. TYLENOL [Concomitant]
     Indication: PAIN
     Dosage: UNK

REACTIONS (6)
  - Malaise [Unknown]
  - Nausea [Unknown]
  - Pain in extremity [Unknown]
  - Unintended pregnancy [Unknown]
  - Medical device complication [Unknown]
  - Incorrect drug administration duration [Unknown]
